FAERS Safety Report 10041082 (Version 3)
Quarter: 2014Q2

REPORT INFORMATION
  Report Type: Spontaneous
  Country: US (occurrence: US)
  Receive Date: 20140327
  Receipt Date: 20140502
  Transmission Date: 20141212
  Serious: Yes (Other)
  Sender: FDA-Public Use
  Company Number: US-ASTELLAS-2014US002985

PATIENT
  Sex: Female
  Weight: 47 kg

DRUGS (3)
  1. PROGRAF [Suspect]
     Indication: LIVER TRANSPLANT
     Route: 048
     Dates: start: 20031030
  2. PROGRAF [Suspect]
     Indication: CHRONIC HEPATITIS C
  3. PROGRAF [Suspect]
     Indication: AORTIC ARTERIOSCLEROSIS

REACTIONS (3)
  - Liver disorder [Unknown]
  - Hepatitis C [Unknown]
  - Off label use [Unknown]
